FAERS Safety Report 8503629-4 (Version None)
Quarter: 2012Q3

REPORT INFORMATION
  Report Type: 
  Country: None (occurrence: None)
  Receive Date: 20120711
  Receipt Date: 20120626
  Transmission Date: 20120928
  Serious: Yes (Hospitalization)
  Sender: FDA-Public Use
  Company Number: GB-WATSON-2012-11355

PATIENT
  Age: 30 Year
  Sex: Male

DRUGS (4)
  1. ACETAMINOPHEN [Concomitant]
     Indication: PAIN
     Dosage: 1 G, PRN, 1G FOUR TIMES A DAY WHEN REQUIRED
     Route: 048
     Dates: start: 20120415
  2. LORAZEPAM [Concomitant]
     Indication: ANXIETY
     Dosage: UNK MG, PRN, 0.5MG - 1MG WHEN REQUIRED
     Route: 048
     Dates: start: 20120425
  3. MIRTAZAPINE [Suspect]
     Indication: ANXIETY
     Dosage: 15 MG, DAILY, AT NIGHT
     Route: 048
     Dates: start: 20120416, end: 20120502
  4. FLUCLOXACILLIN [Concomitant]
     Indication: SKIN INFECTION
     Dosage: 500 MG, QID
     Route: 048
     Dates: start: 20120418, end: 20120424

REACTIONS (2)
  - RESTLESS LEGS SYNDROME [None]
  - PARAESTHESIA [None]
